FAERS Safety Report 9448593 (Version 1)
Quarter: 2013Q3

REPORT INFORMATION
  Report Type: Spontaneous
  Country: US (occurrence: US)
  Receive Date: 20130808
  Receipt Date: 20130808
  Transmission Date: 20140515
  Serious: No
  Sender: FDA-Public Use
  Company Number: US-BAUSCH-BL-2013-000038

PATIENT
  Age: 75 Year
  Sex: Female

DRUGS (1)
  1. CROMOLYN SODIUM NASAL SOLUTION USP [Suspect]
     Indication: HYPERSENSITIVITY
     Dosage: 1 SPRAY; THREE TIMES A DAY; NASAL
     Route: 045
     Dates: start: 201212

REACTIONS (1)
  - Pain in jaw [Recovered/Resolved]
